FAERS Safety Report 11156177 (Version 1)
Quarter: 2015Q2

REPORT INFORMATION
  Report Type: Spontaneous
  Country: FR (occurrence: FR)
  Receive Date: 20150602
  Receipt Date: 20150602
  Transmission Date: 20150821
  Serious: Yes (Hospitalization)
  Sender: FDA-Public Use
  Company Number: FR-HOSPIRA-2879839

PATIENT
  Age: 59 Year
  Sex: Female

DRUGS (19)
  1. AVASTIN [Suspect]
     Active Substance: BEVACIZUMAB
  2. AZANTAC [Concomitant]
     Active Substance: RANITIDINE HYDROCHLORIDE
     Indication: PREMEDICATION
  3. CARBOPLATIN HOSPIRA [Suspect]
     Active Substance: CARBOPLATIN
     Indication: CHEMOTHERAPY
     Route: 042
     Dates: start: 20141212, end: 20141212
  4. PACLITAXEL FRESENIUS KABI [Suspect]
     Active Substance: PACLITAXEL
  5. PACLITAXEL FRESENIUS KABI [Suspect]
     Active Substance: PACLITAXEL
  6. AVASTIN [Suspect]
     Active Substance: BEVACIZUMAB
     Indication: CHEMOTHERAPY
     Route: 042
     Dates: start: 20141212, end: 20141212
  7. AVASTIN [Suspect]
     Active Substance: BEVACIZUMAB
  8. CARBOPLATIN HOSPIRA [Suspect]
     Active Substance: CARBOPLATIN
  9. AVASTIN [Suspect]
     Active Substance: BEVACIZUMAB
  10. PACLITAXEL FRESENIUS KABI [Suspect]
     Active Substance: PACLITAXEL
  11. PACLITAXEL FRESENIUS KABI [Suspect]
     Active Substance: PACLITAXEL
  12. CARBOPLATIN HOSPIRA [Suspect]
     Active Substance: CARBOPLATIN
  13. AVASTIN [Suspect]
     Active Substance: BEVACIZUMAB
  14. PACLITAXEL FRESENIUS KABI [Suspect]
     Active Substance: PACLITAXEL
  15. ZOPHREN                            /00955301/ [Concomitant]
     Active Substance: ONDANSETRON
     Indication: PREMEDICATION
  16. AVASTIN [Suspect]
     Active Substance: BEVACIZUMAB
  17. PACLITAXEL FRESENIUS KABI [Suspect]
     Active Substance: PACLITAXEL
     Indication: CHEMOTHERAPY
     Route: 042
     Dates: start: 20141212, end: 20141212
  18. METHYLPREDNISOLONE MERCK [Concomitant]
     Active Substance: METHYLPREDNISOLONE
     Indication: PREMEDICATION
  19. POLARAMINE [Concomitant]
     Active Substance: DEXCHLORPHENIRAMINE MALEATE
     Indication: PREMEDICATION

REACTIONS (9)
  - Defaecation urgency [Recovered/Resolved]
  - Pain in extremity [None]
  - Flushing [Recovered/Resolved]
  - Abdominal pain [Recovered/Resolved]
  - Blood pressure decreased [None]
  - Hyperhidrosis [Recovered/Resolved]
  - Anxiety [Recovered/Resolved]
  - Tachypnoea [Recovered/Resolved]
  - Infusion related reaction [None]

NARRATIVE: CASE EVENT DATE: 20141212
